FAERS Safety Report 4672369-4 (Version None)
Quarter: 2005Q2

REPORT INFORMATION
  Report Type: 
  Country: None (occurrence: None)
  Receive Date: 20050520
  Receipt Date: 20050425
  Transmission Date: 20051028
  Serious: Yes (Death, Hospitalization)
  Sender: FDA-Public Use
  Company Number: 2005-00513

PATIENT
  Age: 76 Year
  Sex: Female
  Weight: 70 kg

DRUGS (8)
  1. VELCADE [Suspect]
     Indication: MULTIPLE MYELOMA
     Dosage: 2.20 MG, 2/WEEK
  2. LEVOTHYROXINE SODIUM [Concomitant]
  3. OMEPRAZOLE [Concomitant]
  4. ASPIRIN [Concomitant]
  5. ZESTRIL [Concomitant]
  6. LASIX [Concomitant]
  7. DAFLON (DIOSMIN) [Concomitant]
  8. DOGAMATIL (SULPIRIDE) [Concomitant]

REACTIONS (10)
  - ANURIA [None]
  - BLOOD URIC ACID INCREASED [None]
  - BRONCHITIS [None]
  - CARDIAC FAILURE [None]
  - ELECTROLYTE IMBALANCE [None]
  - HYPERKALAEMIA [None]
  - MULTI-ORGAN FAILURE [None]
  - NERVOUS SYSTEM DISORDER [None]
  - RENAL FAILURE [None]
  - TUMOUR LYSIS SYNDROME [None]
